FAERS Safety Report 8900802 (Version 1)
Quarter: 2012Q4

REPORT INFORMATION
  Report Type: 
  Country: IE (occurrence: IE)
  Receive Date: 20121109
  Receipt Date: 20121109
  Transmission Date: 20130627
  Serious: Yes (Other)
  Sender: FDA-Public Use
  Company Number: IE-JNJFOC-20121104775

PATIENT
  Sex: Female

DRUGS (2)
  1. PROVIN [Suspect]
     Route: 065
  2. PROVIN [Suspect]
     Indication: PAIN
     Route: 065

REACTIONS (1)
  - Coeliac disease [Unknown]
